FAERS Safety Report 5943594-7 (Version None)
Quarter: 2008Q4

REPORT INFORMATION
  Report Type: 
  Country: None (occurrence: None)
  Receive Date: 20081106
  Receipt Date: 20081027
  Transmission Date: 20090506
  Serious: Yes (Death, Life-Threatening, Hospitalization)
  Sender: FDA-Public Use
  Company Number: JP-PFIZER INC-2008076220

PATIENT
  Sex: Male
  Weight: 51 kg

DRUGS (7)
  1. SUTENT [Suspect]
     Indication: GASTROINTESTINAL STROMAL TUMOUR
     Route: 048
     Dates: start: 20080806, end: 20080827
  2. FIRSTCIN [Concomitant]
     Route: 042
     Dates: start: 20080812, end: 20080816
  3. PENTCILLIN [Concomitant]
     Route: 042
     Dates: start: 20080817, end: 20080821
  4. FENTANYL [Concomitant]
     Dates: start: 20080818
  5. FLUMARIN [Concomitant]
     Route: 042
     Dates: start: 20080822, end: 20080826
  6. ADONA [Concomitant]
     Route: 042
     Dates: start: 20080819, end: 20080822
  7. TRANSAMIN [Concomitant]
     Route: 042
     Dates: start: 20080819, end: 20080822

REACTIONS (5)
  - ANAEMIA [None]
  - DEATH [None]
  - HYPERBILIRUBINAEMIA [None]
  - HYPOALBUMINAEMIA [None]
  - PLATELET COUNT DECREASED [None]
